FAERS Safety Report 6574667-6 (Version None)
Quarter: 2010Q1

REPORT INFORMATION
  Report Type: 
  Country: None (occurrence: None)
  Receive Date: 20100201
  Receipt Date: 20100115
  Transmission Date: 20100710
  Serious: Yes (Death)
  Sender: FDA-Public Use
  Company Number: 004955

PATIENT
  Age: 78 Year
  Sex: Female

DRUGS (6)
  1. PREDNISOLONE [Suspect]
  2. CYCLOPHOSPHAMIDE [Suspect]
  3. DEXAMETHASONE TAB [Suspect]
  4. DOXORUBICIN HCL [Suspect]
  5. RITUXIMAB (RITUXIMAB) [Suspect]
  6. VINCRISTINE [Suspect]

REACTIONS (4)
  - BONE MARROW FAILURE [None]
  - DEEP VEIN THROMBOSIS [None]
  - DIARRHOEA [None]
  - GENERAL PHYSICAL HEALTH DETERIORATION [None]
